FAERS Safety Report 7229300-7 (Version None)
Quarter: 2011Q1

REPORT INFORMATION
  Report Type: 
  Country: None (occurrence: None)
  Receive Date: 20110117
  Receipt Date: 20110113
  Transmission Date: 20110831
  Serious: Yes (Other)
  Sender: FDA-Public Use
  Company Number: A0905809A

PATIENT
  Age: 31 Year
  Sex: Male

DRUGS (1)
  1. ALLI [Suspect]
     Indication: WEIGHT LOSS DIET
     Route: 048
     Dates: start: 20101001

REACTIONS (9)
  - ILL-DEFINED DISORDER [None]
  - ABDOMINAL DISTENSION [None]
  - STEATORRHOEA [None]
  - RECTAL LESION [None]
  - HAEMATOCHEZIA [None]
  - ABDOMINAL DISCOMFORT [None]
  - DRUG INEFFECTIVE [None]
  - PROCTALGIA [None]
  - TREATMENT NONCOMPLIANCE [None]
